FAERS Safety Report 6825152-5 (Version None)
Quarter: 2010Q3

REPORT INFORMATION
  Report Type: 
  Country: None (occurrence: None)
  Receive Date: 20100708
  Receipt Date: 20061207
  Transmission Date: 20110219
  Serious: No
  Sender: FDA-Public Use
  Company Number: US-PFIZER INC-2006153931

PATIENT
  Sex: Female
  Weight: 63.5 kg

DRUGS (2)
  1. CHANTIX [Suspect]
     Indication: SMOKING CESSATION THERAPY
     Dates: start: 20060101
  2. PROVIGIL [Concomitant]

REACTIONS (5)
  - ABNORMAL DREAMS [None]
  - INSOMNIA [None]
  - NAUSEA [None]
  - POOR QUALITY SLEEP [None]
  - WEIGHT INCREASED [None]
